FAERS Safety Report 11174995 (Version 1)
Quarter: 2015Q2

REPORT INFORMATION
  Report Type: Spontaneous
  Country: US (occurrence: None)
  Receive Date: 20150608
  Receipt Date: 20150608
  Transmission Date: 20150821
  Serious: Yes (Disabling)
  Sender: FDA-Public Use
  Company Number: None

PATIENT
  Age: 57 Year
  Sex: Male
  Weight: 83.92 kg

DRUGS (9)
  1. CREST PRO-HEALTH MULTI-PROTECTION REFRESHING CLEAN MINT [Suspect]
     Active Substance: CETYLPYRIDINIUM CHLORIDE
     Indication: ILL-DEFINED DISORDER
  2. ASPIRIN. [Concomitant]
     Active Substance: ASPIRIN
  3. LYSINE [Concomitant]
     Active Substance: LYSINE
  4. EXTRA C [Concomitant]
  5. MULTIVITAMIN [Concomitant]
     Active Substance: VITAMINS
  6. FISH OIL [Suspect]
     Active Substance: FISH OIL
  7. EXTRA D [Concomitant]
  8. NUTRITIONAL YEAST SUPPLEMENT [Concomitant]
     Active Substance: DIETARY SUPPLEMENT
  9. OCCASIONAL SALT TABLETS [Concomitant]

REACTIONS (2)
  - Fatigue [None]
  - Dysgeusia [None]

NARRATIVE: CASE EVENT DATE: 20150606
